FAERS Safety Report 16963841 (Version 1)
Quarter: 2019Q4

REPORT INFORMATION
  Report Type: Report from Study
  Country: None (occurrence: BR)
  Receive Date: 20191026
  Receipt Date: 20191026
  Transmission Date: 20200122
  Serious: Yes (Other)
  Sender: FDA-Public Use
  Company Number: BR-ABBVIE-19P-020-2975247-00

PATIENT
  Age: 34 Year
  Sex: Male
  Weight: 51 kg

DRUGS (9)
  1. RIVOTRIL [Concomitant]
     Active Substance: CLONAZEPAM
     Indication: SLEEP DISORDER
     Dosage: AT NIGHT;
     Route: 048
  2. CLONAZEPAM. [Concomitant]
     Active Substance: CLONAZEPAM
     Indication: MENTAL DISORDER
     Dosage: DD: UNK; CAUSED VOMIT DUE TO BAD SMELL/TASTE
     Route: 048
  3. CLONAZEPAM. [Concomitant]
     Active Substance: CLONAZEPAM
     Indication: SLEEP DISORDER
  4. RIVOTRIL [Concomitant]
     Active Substance: CLONAZEPAM
     Indication: AGITATION
     Dosage: AT NIGHT;
     Route: 048
  5. CLONAZEPAM. [Concomitant]
     Active Substance: CLONAZEPAM
     Indication: AGITATION
  6. EQUILID [Concomitant]
     Active Substance: SULPIRIDE
     Indication: MENTAL DISORDER
  7. RIVOTRIL [Concomitant]
     Active Substance: CLONAZEPAM
     Indication: MENTAL DISORDER
     Dosage: AT NIGHT; DD: UNK
     Route: 048
  8. EQUILID [Concomitant]
     Active Substance: SULPIRIDE
     Indication: IRRITABILITY
     Dosage: IN THE MORNING, DD 1 TABLET
     Route: 048
  9. DEPAKOTE ER [Suspect]
     Active Substance: DIVALPROEX SODIUM
     Indication: EPILEPSY
     Dosage: AT NIGHT
     Route: 048

REACTIONS (14)
  - Suicide attempt [Unknown]
  - Loss of consciousness [Recovered/Resolved]
  - Violence-related symptom [Unknown]
  - Agitation [Not Recovered/Not Resolved]
  - Drooling [Recovered/Resolved]
  - Head injury [Unknown]
  - Pain [Unknown]
  - Unevaluable event [Unknown]
  - Pain in extremity [Unknown]
  - Aggression [Unknown]
  - Nervousness [Unknown]
  - Epilepsy [Unknown]
  - Suicidal ideation [Unknown]
  - Intentional dose omission [Unknown]

NARRATIVE: CASE EVENT DATE: 201910
